FAERS Safety Report 8081406-9 (Version None)
Quarter: 2012Q1

REPORT INFORMATION
  Report Type: 
  Country: None (occurrence: None)
  Receive Date: 20120130
  Receipt Date: 20120126
  Transmission Date: 20120608
  Serious: Yes (Hospitalization)
  Sender: FDA-Public Use
  Company Number: FR-PFIZER INC-K201000490

PATIENT
  Age: 70 Year
  Sex: Male

DRUGS (9)
  1. PHENPROCOUMON [Concomitant]
     Dosage: UNK
     Dates: start: 20071001, end: 20090601
  2. INSPRA [Suspect]
     Indication: CARDIAC FAILURE
     Dosage: 25 MG, 1X/DAY
     Route: 048
     Dates: start: 20071101, end: 20090723
  3. ENOXAPARIN SODIUM [Suspect]
     Indication: CARDIAC PACEMAKER INSERTION
     Dosage: 80 MG, 2X/DAY
     Route: 058
     Dates: start: 20090605, end: 20090723
  4. BISOPROLOL FUMARATE [Suspect]
     Indication: CARDIAC FAILURE
     Dosage: 2.5 MG, 1X/DAY
     Route: 048
     Dates: start: 20030101
  5. FUROSEMIDE [Suspect]
     Indication: OEDEMA PERIPHERAL
     Dosage: 250 MG, 2X/DAY
     Route: 048
     Dates: start: 20090620, end: 20090723
  6. DIGITOXIN [Concomitant]
     Dosage: UNK
     Dates: start: 20030101
  7. AQUAPHOR [Suspect]
     Indication: HYPERTENSION
     Dosage: 10 MG, 1X/DAY
     Route: 048
     Dates: start: 20090620, end: 20090723
  8. ALTACE [Suspect]
     Indication: HYPERTENSION
     Dosage: 2.5 MG, 1X/DAY
     Route: 048
     Dates: start: 20050101, end: 20090723
  9. ACETYLSALICYLIC ACID SRT [Suspect]
     Indication: CORONARY ARTERY DISEASE
     Dosage: 100 MG, 1X/DAY
     Route: 048
     Dates: start: 20070101

REACTIONS (7)
  - HYPOTENSION [None]
  - RENAL FAILURE ACUTE [None]
  - DEHYDRATION [None]
  - PNEUMONIA [None]
  - URETHRAL HAEMORRHAGE [None]
  - SHOCK HAEMORRHAGIC [None]
  - HYPOVOLAEMIC SHOCK [None]
